FAERS Safety Report 4628039-1 (Version None)
Quarter: 2005Q2

REPORT INFORMATION
  Report Type: 
  Country: None (occurrence: None)
  Receive Date: 20050406
  Receipt Date: 20050317
  Transmission Date: 20051028
  Serious: Yes (Hospitalization, Other)
  Sender: FDA-Public Use
  Company Number: JP-MERCK-0503USA03117

PATIENT
  Age: 84 Year
  Sex: Male

DRUGS (3)
  1. COZAAR [Suspect]
     Indication: HYPERTENSION
     Route: 048
     Dates: start: 20040801, end: 20050201
  2. ALOSITOL [Suspect]
     Indication: HYPERURICAEMIA
     Route: 048
     Dates: start: 20030801, end: 20050201
  3. STARSIS [Concomitant]
     Indication: DIABETES MELLITUS
     Route: 048
     Dates: end: 20050201

REACTIONS (3)
  - ASTHENIA [None]
  - BLOOD CREATINE PHOSPHOKINASE INCREASED [None]
  - LIVER DISORDER [None]
